FAERS Safety Report 8606979-6 (Version None)
Quarter: 2012Q3

REPORT INFORMATION
  Report Type: 
  Country: None (occurrence: None)
  Receive Date: 20120820
  Receipt Date: 20120816
  Transmission Date: 20120928
  Serious: Yes (Hospitalization, Other)
  Sender: FDA-Public Use
  Company Number: US-GILEAD-2012-0059934

PATIENT
  Sex: Female

DRUGS (2)
  1. COUMADIN [Concomitant]
  2. LETAIRIS [Suspect]
     Indication: PRODUCT USED FOR UNKNOWN INDICATION
     Dosage: 5 MG, UNK
     Route: 048
     Dates: start: 20120731

REACTIONS (3)
  - ANAEMIA [None]
  - HAEMOPTYSIS [None]
  - PNEUMONIA [None]
